FAERS Safety Report 16186848 (Version 10)
Quarter: 2020Q1

REPORT INFORMATION
  Report Type: Report from Study
  Country: AU (occurrence: AU)
  Receive Date: 20190411
  Receipt Date: 20200113
  Transmission Date: 20200409
  Serious: Yes (Other)
  Sender: FDA-Public Use
  Company Number: AU-SHIRE-AU201909755

PATIENT

DRUGS (5)
  1. TEDUGLUTIDE [Suspect]
     Active Substance: TEDUGLUTIDE
     Dosage: UNK, 1X/DAY:QD
     Route: 058
  2. LOPERAMIDE [Concomitant]
     Active Substance: LOPERAMIDE
     Indication: PRODUCT USED FOR UNKNOWN INDICATION
     Dosage: UNK, UNKNOWN
     Route: 065
  3. TEDUGLUTIDE [Suspect]
     Active Substance: TEDUGLUTIDE
     Indication: SHORT-BOWEL SYNDROME
     Dosage: UNK UNK, 1X/DAY:QD
     Route: 058
     Dates: start: 20190320
  4. TEDUGLUTIDE [Suspect]
     Active Substance: TEDUGLUTIDE
     Dosage: 0.28 MILLILITER
     Route: 058
  5. TPN [AMINO ACIDS NOS;CARBOHYDRATES NOS;MINERALS NOS;VITAMINS NOS] [Concomitant]
     Active Substance: AMINO ACIDS\CARBOHYDRATES\MINERALS\VITAMINS
     Indication: PRODUCT USED FOR UNKNOWN INDICATION

REACTIONS (19)
  - Gastrointestinal obstruction [Unknown]
  - Stoma site pain [Unknown]
  - Impaired gastric emptying [Unknown]
  - Dysphagia [Unknown]
  - Stoma complication [Unknown]
  - Obstruction [Not Recovered/Not Resolved]
  - Muscle tightness [Unknown]
  - Stress [Unknown]
  - Muscle spasms [Unknown]
  - Stoma site haemorrhage [Unknown]
  - Food intolerance [Unknown]
  - Hypophagia [Unknown]
  - Weight decreased [Unknown]
  - Fluid overload [Unknown]
  - International normalised ratio decreased [Unknown]
  - Oedema [Unknown]
  - Gastrointestinal stoma output decreased [Unknown]
  - Hypoglycaemia [Recovered/Resolved]
  - Oedema peripheral [Recovering/Resolving]

NARRATIVE: CASE EVENT DATE: 20190328
